FAERS Safety Report 9357455 (Version 4)
Quarter: 2013Q3

REPORT INFORMATION
  Report Type: Report from Study
  Country: BR (occurrence: BR)
  Receive Date: 20130620
  Receipt Date: 20130808
  Transmission Date: 20140515
  Serious: Yes (Other)
  Sender: FDA-Public Use
  Company Number: PHHY2013BR061192

PATIENT
  Age: 80 Year
  Sex: Male
  Weight: 45 kg

DRUGS (9)
  1. EVEROLIMUS [Suspect]
     Indication: IMMUNOSUPPRESSION
     Dosage: 1.5 MG, BID (12/12 HOURS)
     Route: 048
     Dates: start: 20120504
  2. MYCOPHENOLATE [Suspect]
     Indication: IMMUNOSUPPRESSION
     Dosage: 360 MG, 8/8 HOURS TID
  3. MYCOPHENOLATE [Suspect]
     Dosage: 720 MG, (12/12 HOURS)
     Route: 048
     Dates: start: 20120504
  4. BASILIXIMAB [Suspect]
     Indication: RENAL TRANSPLANT
     Dosage: 20 MG, UNK
     Route: 058
     Dates: start: 20120503
  5. BASILIXIMAB [Suspect]
     Dosage: 20 MG, (ON FOURTH POST-OPERATIVE DAY)
     Dates: end: 20120507
  6. METHYLPREDNISOLONE [Suspect]
     Indication: RENAL TRANSPLANT
     Dosage: 1 DF (IN THE INTRAOPERATIVE PERIOD )
     Route: 042
     Dates: start: 20120503
  7. PREDNISONE [Suspect]
     Indication: IMMUNOSUPPRESSION
     Dosage: 20 MG, DAILY
     Route: 048
     Dates: start: 20120504
  8. PREDNISONE [Suspect]
     Dosage: 15 MG PER DAY
  9. PREDNISONE [Suspect]
     Dosage: 5MG/DAY

REACTIONS (8)
  - Urine output decreased [Recovering/Resolving]
  - Blood creatinine increased [Recovering/Resolving]
  - Blood pressure increased [Recovering/Resolving]
  - Confusional state [Recovered/Resolved]
  - Leukocyturia [Recovering/Resolving]
  - Enterococcal infection [Recovering/Resolving]
  - Blood cholesterol abnormal [Recovering/Resolving]
  - Proteinuria [Recovering/Resolving]
